FAERS Safety Report 4302813-3 (Version None)
Quarter: 2004Q1

REPORT INFORMATION
  Report Type: 
  Country: None (occurrence: None)
  Receive Date: 20040223
  Receipt Date: 20040223
  Transmission Date: 20041129
  Serious: Yes (Death)
  Sender: FDA-Public Use
  Company Number: None

PATIENT
  Age: 48 Year
  Sex: Male
  Weight: 81.1939 kg

DRUGS (2)
  1. ZOLOFT [Suspect]
     Indication: STRESS SYMPTOMS
     Dosage: ONE AT NIGHT ORAL
     Route: 048
     Dates: start: 20031030, end: 20031105
  2. AMBIEN [Suspect]
     Indication: SLEEP DISORDER
     Dosage: ONE NIGHTLY ORAL
     Route: 048
     Dates: start: 20031030, end: 20031105

REACTIONS (6)
  - ABNORMAL BEHAVIOUR [None]
  - COMPLETED SUICIDE [None]
  - DEPRESSION [None]
  - DIVERTICULUM [None]
  - MALAISE [None]
  - PAIN [None]
